FAERS Safety Report 8313892-0 (Version None)
Quarter: 2012Q2

REPORT INFORMATION
  Report Type: 
  Country: None (occurrence: None)
  Receive Date: 20120426
  Receipt Date: 20110808
  Transmission Date: 20120825
  Serious: Yes (Other)
  Sender: FDA-Public Use
  Company Number: US-TEVA-US021460

PATIENT
  Sex: Male
  Weight: 107 kg

DRUGS (2)
  1. PROVIGIL [Suspect]
     Indication: SLEEP APNOEA SYNDROME
     Dosage: 200 MILLIGRAM;
     Route: 048
     Dates: start: 20071002, end: 20071015
  2. REQUIP [Suspect]
     Indication: RESTLESS LEGS SYNDROME
     Dosage: .05 MILLIGRAM;
     Route: 065
     Dates: start: 20070601, end: 20071015

REACTIONS (3)
  - DRUG INTERACTION [None]
  - IDEAS OF REFERENCE [None]
  - PARANOIA [None]
